FAERS Safety Report 8846560 (Version 2)
Quarter: 2012Q4

REPORT INFORMATION
  Report Type: 
  Country: IT (occurrence: IT)
  Receive Date: 20121017
  Receipt Date: 20121119
  Transmission Date: 20130627
  Serious: Yes (Hospitalization)
  Sender: FDA-Public Use
  Company Number: IT-GLAXOSMITHKLINE-B0838170A

PATIENT
  Age: 68 Year
  Sex: Male

DRUGS (5)
  1. RYTHMOL [Suspect]
     Indication: ARRHYTHMIA
     Dosage: 650MG Per day
     Route: 048
     Dates: start: 20080101, end: 20121008
  2. ATENOLOL [Suspect]
     Indication: PRODUCT USED FOR UNKNOWN INDICATION
     Dosage: 25MG Per day
     Route: 048
     Dates: start: 20080101, end: 20121008
  3. OMEPRAZOLE [Concomitant]
     Route: 065
  4. LYSINE ACETYLSALICYLATE [Concomitant]
     Route: 065
  5. QUINAPRIL HYDROCHLORIDE [Concomitant]
     Route: 065

REACTIONS (2)
  - Atrial fibrillation [Recovered/Resolved]
  - Palpitations [Recovered/Resolved]
